FAERS Safety Report 8397441-7 (Version None)
Quarter: 2012Q2

REPORT INFORMATION
  Report Type: 
  Country: None (occurrence: None)
  Receive Date: 20120529
  Receipt Date: 20120529
  Transmission Date: 20120825
  Serious: Yes (Other)
  Sender: FDA-Public Use
  Company Number: None

PATIENT
  Age: 52 Year
  Sex: Female
  Weight: 99.7913 kg

DRUGS (2)
  1. SULFAMETHOXAZOLE AND TRIMETHOPRIM [Suspect]
     Indication: SINUSITIS
     Dosage: 1 TABLET TWICE DAILY PO  ONE DOSE
     Route: 048
     Dates: start: 20120504, end: 20120504
  2. SULFAMETHOXAZOLE AND TRIMETHOPRIM [Suspect]
     Indication: EAR INFECTION
     Dosage: 1 TABLET TWICE DAILY PO  ONE DOSE
     Route: 048
     Dates: start: 20120504, end: 20120504

REACTIONS (9)
  - VOMITING PROJECTILE [None]
  - ARTHRALGIA [None]
  - SKIN WARM [None]
  - HEADACHE [None]
  - ARTHROPATHY [None]
  - JOINT CREPITATION [None]
  - ERYTHEMA [None]
  - RASH [None]
  - SKIN BURNING SENSATION [None]
